FAERS Safety Report 25644547 (Version 1)
Quarter: 2025Q3

REPORT INFORMATION
  Report Type: Spontaneous
  Country: NZ (occurrence: NZ)
  Receive Date: 20250805
  Receipt Date: 20250805
  Transmission Date: 20251021
  Serious: Yes (Other)
  Sender: GUERBET
  Company Number: NZ-GUERBET / NEW ZEALAND-NZ-20250002

PATIENT
  Age: 32 Year
  Sex: Female
  Weight: 69 kg

DRUGS (2)
  1. DOTAREM [Suspect]
     Active Substance: GADOTERATE MEGLUMINE
     Indication: Magnetic resonance cholangiopancreatography
     Route: 042
     Dates: start: 20250718, end: 20250718
  2. SALINE [Concomitant]
     Active Substance: SODIUM CHLORIDE
     Indication: Catheter management
     Dates: start: 20250718, end: 20250718

REACTIONS (3)
  - Chest pain [Recovered/Resolved]
  - Dyspnoea [Recovered/Resolved]
  - Rash pruritic [Recovered/Resolved]

NARRATIVE: CASE EVENT DATE: 20250718
